FAERS Safety Report 5323689-1 (Version None)
Quarter: 2007Q2

REPORT INFORMATION
  Report Type: 
  Country: None (occurrence: None)
  Receive Date: 20070514
  Receipt Date: 20070503
  Transmission Date: 20071010
  Serious: Yes (Hospitalization)
  Sender: FDA-Public Use
  Company Number: US-ROCHE-496007

PATIENT
  Age: 20 Year
  Sex: Male

DRUGS (3)
  1. ACCUTANE [Suspect]
     Indication: DRUG USE FOR UNKNOWN INDICATION
     Route: 065
  2. MORPHINE [Suspect]
     Route: 065
  3. UNKNOWN MEDICATION FOR PAIN [Suspect]
     Route: 065

REACTIONS (3)
  - CARDIAC ARREST [None]
  - PARAESTHESIA [None]
  - SUNBURN [None]
